FAERS Safety Report 8117086-3 (Version None)
Quarter: 2012Q1

REPORT INFORMATION
  Report Type: 
  Country: None (occurrence: None)
  Receive Date: 20120206
  Receipt Date: 20120127
  Transmission Date: 20120608
  Serious: Yes (Hospitalization)
  Sender: FDA-Public Use
  Company Number: AT-ABBOTT-11P-009-0886548-04

PATIENT
  Sex: Female
  Weight: 56 kg

DRUGS (12)
  1. PURINETHOL [Concomitant]
     Indication: CROHN'S DISEASE
     Dates: start: 20110917
  2. HUMIRA [Suspect]
     Dosage: BASELINE
     Dates: start: 20080212
  3. PREDNISOLONE [Concomitant]
     Dates: start: 20090609, end: 20090622
  4. HUMIRA [Suspect]
     Indication: CROHN'S DISEASE
     Route: 058
     Dates: start: 20080212, end: 20111114
  5. HUMIRA [Suspect]
     Route: 058
  6. PREDNISOLONE [Concomitant]
  7. FOLSAN [Concomitant]
     Indication: PROPHYLAXIS
     Dates: start: 20090716
  8. FOLSAN [Concomitant]
     Indication: OSTEOPOROSIS PROPHYLAXIS
  9. FOLSAN [Concomitant]
  10. HUMIRA [Suspect]
     Dosage: WEEK 2
  11. FOLSAN [Concomitant]
     Indication: VITAMIN SUPPLEMENTATION
     Dates: start: 20091015
  12. PREDNISOLONE [Concomitant]
     Indication: CROHN'S DISEASE
     Dates: start: 20090527, end: 20090603

REACTIONS (1)
  - CROHN'S DISEASE [None]
